FAERS Safety Report 14596191 (Version 1)
Quarter: 2018Q1

REPORT INFORMATION
  Report Type: Spontaneous
  Country: DE (occurrence: DE)
  Receive Date: 20180303
  Receipt Date: 20180303
  Transmission Date: 20180509
  Serious: Yes (Other)
  Sender: FDA-Public Use
  Company Number: DE-AUROBINDO-AUR-APL-2018-011095

PATIENT
  Age: 2 Year
  Sex: Male

DRUGS (2)
  1. NUROFEN                            /00109201/ [Suspect]
     Active Substance: IBUPROFEN
     Indication: PYREXIA
     Dosage: UNK
     Route: 054
     Dates: start: 20170101, end: 20171001
  2. PARACETAMOL [Suspect]
     Active Substance: ACETAMINOPHEN
     Indication: PRODUCT USED FOR UNKNOWN INDICATION
     Route: 065

REACTIONS (8)
  - Slow response to stimuli [Unknown]
  - Crying [Unknown]
  - Abdominal distension [Unknown]
  - Pain [Unknown]
  - Urticaria [Recovering/Resolving]
  - Vomiting [Unknown]
  - Pruritus generalised [Unknown]
  - Agitation [Unknown]

NARRATIVE: CASE EVENT DATE: 20171001
